FAERS Safety Report 22973860 (Version 2)
Quarter: 2023Q4

REPORT INFORMATION
  Report Type: Spontaneous
  Country: US (occurrence: US)
  Receive Date: 20230922
  Receipt Date: 20231009
  Transmission Date: 20240110
  Serious: No
  Sender: FDA-Public Use
  Company Number: US-FreseniusKabi-FK202314505

PATIENT
  Age: 67 Year
  Sex: Female
  Weight: 74.4 kg

DRUGS (11)
  1. XYLOCAINE WITH EPINEPHRINE [Suspect]
     Active Substance: EPINEPHRINE BITARTRATE\LIDOCAINE HYDROCHLORIDE
     Indication: Local anaesthesia
     Dosage: 14 ML OF 1 PERCENT XYLOCAINE WITH EPINEPHRINE?FREQUENCY - ONCE?ROUTE OF ADMIN. - INJECTION
  2. AMIKACIN [Concomitant]
     Active Substance: AMIKACIN
     Indication: Product used for unknown indication
     Route: 042
  3. BACITRACIN [Concomitant]
     Active Substance: BACITRACIN
     Indication: Debridement
     Dosage: 500 UNITS/G
     Route: 061
  4. CALCIUM CITRATE [Concomitant]
     Active Substance: CALCIUM CITRATE
     Indication: Product used for unknown indication
  5. CHOLECALCIFEROL [Concomitant]
     Active Substance: CHOLECALCIFEROL
     Indication: Product used for unknown indication
  6. DENOSUMAB [Concomitant]
     Active Substance: DENOSUMAB
     Indication: Product used for unknown indication
     Dosage: 1 ML EVERY 6 MONTHS
  7. ESCITALOPRAM [Concomitant]
     Active Substance: ESCITALOPRAM OXALATE
     Indication: Product used for unknown indication
     Dosage: 1.5 TABLETS DAILY
  8. LISINOPRIL [Concomitant]
     Active Substance: LISINOPRIL
     Indication: Product used for unknown indication
  9. MAGNESIUM OXIDE [Concomitant]
     Active Substance: MAGNESIUM OXIDE
     Indication: Product used for unknown indication
  10. Omega 3 fatty acids - fish oil [Concomitant]
     Indication: Product used for unknown indication
     Dosage: 300-1000 MG ? 2 CAPSULES DAILY
  11. Multivitamin women 50 plus [Concomitant]
     Indication: Product used for unknown indication
     Dosage: MULTIVITAMIN WOMEN 50 PLUS ? 1 DAILY

REACTIONS (1)
  - Therapeutic product effect decreased [Unknown]
